FAERS Safety Report 7731421-7 (Version None)
Quarter: 2011Q3

REPORT INFORMATION
  Report Type: 
  Country: None (occurrence: None)
  Receive Date: 20110906
  Receipt Date: 20110531
  Transmission Date: 20111222
  Serious: No
  Sender: FDA-Public Use
  Company Number: US-AMGEN-USASP2011028172

PATIENT
  Age: 74 Year
  Sex: Female

DRUGS (6)
  1. SIMVASTATIN [Concomitant]
  2. OCUVITE                            /01053801/ [Concomitant]
     Dosage: UNK
  3. PROLIA [Suspect]
     Indication: OSTEOPOROSIS POSTMENOPAUSAL
     Dates: start: 20110406
  4. CALCIUM WITH VITAMIN D             /00944201/ [Concomitant]
     Dosage: UNK
  5. PREDNISONE [Concomitant]
  6. LOSARTAN [Concomitant]

REACTIONS (3)
  - BACK PAIN [None]
  - ABDOMINAL DISCOMFORT [None]
  - ABDOMINAL PAIN UPPER [None]
